FAERS Safety Report 4542663-6 (Version None)
Quarter: 2004Q4

REPORT INFORMATION
  Report Type: 
  Country: None (occurrence: None)
  Receive Date: 20041230
  Receipt Date: 20040226
  Transmission Date: 20050328
  Serious: Yes (Death, Hospitalization)
  Sender: FDA-Public Use
  Company Number: US-MERCK-0402USA01954

PATIENT
  Age: 45 Year
  Sex: Male
  Weight: 138 kg

DRUGS (12)
  1. VIOXX [Suspect]
     Indication: GOUT
     Route: 048
     Dates: start: 20000602, end: 20020205
  2. VIOXX [Suspect]
     Route: 048
     Dates: start: 20020101
  3. ACCUPRIL [Concomitant]
     Indication: HYPERTENSION
     Route: 065
     Dates: start: 20001215, end: 20020205
  4. VASOTEC [Concomitant]
     Indication: HYPERTENSION
     Route: 065
     Dates: start: 19980922, end: 20000915
  5. ENALAPRIL MALEATE [Concomitant]
     Indication: HYPERTENSION
     Route: 065
     Dates: start: 20001215, end: 20011102
  6. VERAPAMIL [Concomitant]
     Indication: ANGINA PECTORIS
     Route: 065
     Dates: start: 20001215, end: 20020205
  7. GLUCOVANCE [Concomitant]
     Indication: DIABETES MELLITUS
     Route: 065
     Dates: start: 19970101
  8. GLUCOPHAGE [Concomitant]
     Indication: DIABETES MELLITUS
     Route: 065
     Dates: start: 19970101
  9. GLUCOTROL XL [Concomitant]
     Indication: DIABETES MELLITUS
     Route: 065
     Dates: start: 19970101
  10. ALLOPURINOL [Concomitant]
     Indication: GOUT
     Route: 065
  11. COLCHICINE [Concomitant]
     Indication: GOUT
     Route: 065
  12. BENZONATATE [Concomitant]
     Route: 065

REACTIONS (13)
  - ACUTE MYOCARDIAL INFARCTION [None]
  - ANGIOPATHY [None]
  - BLOOD PRESSURE INCREASED [None]
  - CARDIAC ARREST [None]
  - CARDIOMEGALY [None]
  - CELLULITIS [None]
  - JOINT SPRAIN [None]
  - LIMB INJURY [None]
  - MYOCARDIAL INFARCTION [None]
  - PARAESTHESIA [None]
  - PULMONARY VASCULAR DISORDER [None]
  - SKIN ULCER [None]
  - TINEL'S SIGN [None]
